FAERS Safety Report 24330105 (Version 1)
Quarter: 2024Q3

REPORT INFORMATION
  Report Type: Report from Study
  Country: CA (occurrence: None)
  Receive Date: 20240917
  Receipt Date: 20240917
  Transmission Date: 20241016
  Serious: Yes (Death, Hospitalization)
  Sender: ASTRAZENECA
  Company Number: 2024A212111

PATIENT
  Sex: Female

DRUGS (5)
  1. FASENRA [Suspect]
     Active Substance: BENRALIZUMAB
     Indication: Asthma
     Dosage: 30.0MG UNKNOWN
     Route: 058
     Dates: start: 20240201
  2. OLODATEROL HYDROCHLORIDE\TIOTROPIUM BROMIDE MONOHYDRATE [Concomitant]
     Active Substance: OLODATEROL HYDROCHLORIDE\TIOTROPIUM BROMIDE MONOHYDRATE
     Dosage: 2.5 MCG 2 PUFFS DIE
  3. ALVESCO [Concomitant]
     Active Substance: CICLESONIDE
     Dosage: 200 MCG 2 PUFFS DIE
  4. ADVAIR HFA [Concomitant]
     Active Substance: FLUTICASONE PROPIONATE\SALMETEROL XINAFOATE
     Dosage: 250MCG 2 PUFFS QID
  5. VENTOLIN [Concomitant]
     Active Substance: ALBUTEROL SULFATE
     Dosage: 200 MCG PRN

REACTIONS (1)
  - Death [Fatal]
